FAERS Safety Report 6973861-X (Version None)
Quarter: 2010Q3

REPORT INFORMATION
  Report Type: 
  Country: None (occurrence: None)
  Receive Date: 20100909
  Receipt Date: 20100901
  Transmission Date: 20110219
  Serious: Yes (Hospitalization)
  Sender: FDA-Public Use
  Company Number: B0671076A

PATIENT
  Sex: Female
  Weight: 32 kg

DRUGS (8)
  1. ARIXTRA [Suspect]
     Indication: THROMBOSIS PROPHYLAXIS
     Dosage: 2.5MG PER DAY
     Route: 058
     Dates: start: 20100401, end: 20100601
  2. SEROPLEX [Suspect]
     Indication: DEPRESSION
     Dosage: 10MG PER DAY
     Route: 048
     Dates: start: 20091005
  3. LASIX [Concomitant]
     Dosage: 20MG PER DAY
     Route: 048
     Dates: start: 20091105
  4. ALDACTONE [Concomitant]
     Dosage: 12.5MG PER DAY
     Route: 048
     Dates: start: 20091105
  5. RIVOTRIL [Concomitant]
     Indication: ANXIETY
     Dosage: 3DROP AS REQUIRED
     Route: 048
     Dates: start: 20090101
  6. BISOPROLOL FUMARATE [Concomitant]
     Dosage: 1.25MG PER DAY
     Route: 048
     Dates: start: 20090101
  7. FOSAVANCE [Concomitant]
     Indication: OSTEOPOROSIS
     Dosage: 70MG WEEKLY
     Route: 048
     Dates: start: 20090301
  8. PERINDOPRIL ERBUMINE [Concomitant]
     Dosage: 2MG SINGLE DOSE
     Route: 048
     Dates: start: 20090120

REACTIONS (5)
  - ANAEMIA [None]
  - CONTRAINDICATION TO MEDICAL TREATMENT [None]
  - HAEMORRHAGE [None]
  - INCORRECT DRUG ADMINISTRATION DURATION [None]
  - OVERDOSE [None]
